FAERS Safety Report 21895495 (Version 1)
Quarter: 2023Q1

REPORT INFORMATION
  Report Type: Spontaneous
  Country: US (occurrence: US)
  Receive Date: 20230123
  Receipt Date: 20230123
  Transmission Date: 20230417
  Serious: No
  Sender: FDA-Public Use
  Company Number: US-BRISTOL-MYERS SQUIBB COMPANY-2023-009722

PATIENT
  Age: 64 Year
  Sex: Male

DRUGS (22)
  1. SPRYCEL [Suspect]
     Active Substance: DASATINIB
     Indication: Chronic myeloid leukaemia
     Dosage: DOSE : 40MG;     FREQ : A DAY
     Route: 048
  2. VITAMIN C [Concomitant]
     Active Substance: ASCORBIC ACID
     Indication: Arthritis
  3. PLAVIX [Concomitant]
     Active Substance: CLOPIDOGREL BISULFATE
     Indication: Arthritis
  4. VITAMINS [Concomitant]
     Active Substance: VITAMINS
  5. TYLENOL [Concomitant]
     Active Substance: ACETAMINOPHEN
     Indication: Arthritis
  6. NORVASC [Concomitant]
     Active Substance: AMLODIPINE BESYLATE
     Indication: Arthritis
  7. COREG [Concomitant]
     Active Substance: CARVEDILOL
     Indication: Arthritis
  8. VITAMIN D [Concomitant]
     Active Substance: VITAMIN D NOS
     Indication: Arthritis
  9. CLONIDINE [Concomitant]
     Active Substance: CLONIDINE
     Indication: Arthritis
  10. ADOXA [Concomitant]
     Active Substance: DOXYCYCLINE
     Indication: Arthritis
  11. CYMBALTA [Concomitant]
     Active Substance: DULOXETINE HYDROCHLORIDE
     Indication: Arthritis
  12. ELIQUIS [Concomitant]
     Active Substance: APIXABAN
     Indication: Arthritis
  13. JARDIANCE [Concomitant]
     Active Substance: EMPAGLIFLOZIN
     Indication: Arthritis
  14. EPINEPHRINE [Concomitant]
     Active Substance: EPINEPHRINE
     Indication: Arthritis
  15. LOFIBRA [Concomitant]
     Active Substance: FENOFIBRATE
     Indication: Arthritis
  16. HYDROCHLOROTHIAZIDE [Concomitant]
     Active Substance: HYDROCHLOROTHIAZIDE
     Indication: Arthritis
  17. MELATONIN [Concomitant]
     Active Substance: MELATONIN
     Indication: Arthritis
  18. METFORMIN [Concomitant]
     Active Substance: METFORMIN HYDROCHLORIDE
     Indication: Product used for unknown indication
  19. PROTONIX [Concomitant]
     Active Substance: PANTOPRAZOLE SODIUM
  20. CRESTOR [Concomitant]
     Active Substance: ROSUVASTATIN CALCIUM
  21. OZEMPIC [Concomitant]
     Active Substance: SEMAGLUTIDE
  22. FLOMAX [Concomitant]
     Active Substance: TAMSULOSIN HYDROCHLORIDE

REACTIONS (2)
  - Dyspnoea [Unknown]
  - Aspiration pleural cavity [Unknown]

NARRATIVE: CASE EVENT DATE: 20181029
